FAERS Safety Report 6235263-3 (Version None)
Quarter: 2009Q2

REPORT INFORMATION
  Report Type: 
  Country: None (occurrence: None)
  Receive Date: 20090618
  Receipt Date: 20090616
  Transmission Date: 20091009
  Serious: Yes (Hospitalization)
  Sender: FDA-Public Use
  Company Number: US-WYE-H09317309

PATIENT
  Sex: Female
  Weight: 81.72 kg

DRUGS (4)
  1. PRISTIQ [Suspect]
     Indication: DEPRESSION
     Route: 048
     Dates: start: 20080916, end: 20080925
  2. ASCORBIC ACID/ERGOCALCIFEROL/FOLIC ACID/NICOTINAMIDE/PANTHENOL/RETINOL [Concomitant]
     Dosage: UNKNOWN
  3. FISH OIL, HYDROGENATED [Concomitant]
     Dosage: UNKNOWN
  4. SIMVASTATIN [Concomitant]
     Dosage: UNKNOWN
     Dates: start: 20080601

REACTIONS (1)
  - URTICARIA [None]
